FAERS Safety Report 16664043 (Version 6)
Quarter: 2022Q3

REPORT INFORMATION
  Report Type: Spontaneous
  Country: GR (occurrence: GR)
  Receive Date: 20190802
  Receipt Date: 20220805
  Transmission Date: 20221027
  Serious: Yes (Other)
  Sender: FDA-Public Use
  Company Number: None

PATIENT

DRUGS (9)
  1. PITAVASTATIN [Suspect]
     Active Substance: PITAVASTATIN
     Indication: Blood cholesterol increased
     Dosage: 0.5 DF, QD
     Route: 048
  2. CRANBERRY [Suspect]
     Active Substance: CRANBERRY
     Indication: Urinary tract infection
     Dosage: 1 DF, QD
     Route: 048
     Dates: end: 201908
  3. NITROFURANTOIN [Interacting]
     Active Substance: NITROFURANTOIN
     Indication: Urinary tract infection
     Dosage: 100 MG, QD
     Route: 048
     Dates: start: 201902, end: 201908
  4. CIPROFLOXACIN [Suspect]
     Active Substance: CIPROFLOXACIN
     Indication: Urinary tract infection
     Dosage: 1000 MG, QD
     Route: 048
  5. AMOXICILLIN [Suspect]
     Active Substance: AMOXICILLIN
     Indication: Urinary tract infection
     Dosage: UNK
     Route: 065
  6. CEFUROXIME [Suspect]
     Active Substance: CEFUROXIME
     Indication: Urinary tract infection
     Route: 065
  7. MEDITHYROX [Concomitant]
     Indication: Autoimmune thyroiditis
     Dosage: 88 MICROG, QD
     Route: 048
  8. LOSEC [Concomitant]
     Active Substance: OMEPRAZOLE
     Indication: Product used for unknown indication
     Dosage: 1 DF, TIW
     Route: 048
  9. HYDROCHLOROTHIAZIDE\VALSARTAN [Concomitant]
     Active Substance: HYDROCHLOROTHIAZIDE\VALSARTAN
     Indication: Product used for unknown indication
     Dosage: UNK
     Route: 048

REACTIONS (5)
  - Autoimmune hepatitis [Recovered/Resolved]
  - Dry mouth [Recovered/Resolved]
  - Hepatic enzyme increased [Recovered/Resolved]
  - Wrong technique in product usage process [Unknown]
  - Drug interaction [Unknown]
